FAERS Safety Report 5117098-8 (Version None)
Quarter: 2006Q3

REPORT INFORMATION
  Report Type: 
  Country: None (occurrence: None)
  Receive Date: 20060925
  Receipt Date: 20060914
  Transmission Date: 20061208
  Serious: Yes (Death, Life-Threatening)
  Sender: FDA-Public Use
  Company Number: 2006JP002389

PATIENT
  Age: 96 Year
  Sex: Male

DRUGS (4)
  1. FUNGUARD                        (MICAFUNGIN) INJECTION [Suspect]
     Indication: CANDIDA SEPSIS
     Dosage: 150 MG, UID/QD, IV DRIP
     Route: 041
     Dates: start: 20060602, end: 20060607
  2. TIENAM                     (IMIPENEM, CILASTATIN SODIUM) INJECTION [Suspect]
     Indication: PNEUMONIA
     Dosage: 0.5 G, BID, IV NOS
     Route: 042
     Dates: start: 20060601, end: 20060605
  3. PRODIF           INJECTION [Concomitant]
  4. MINOCYCLINE HCL [Concomitant]

REACTIONS (9)
  - ANURIA [None]
  - BLOOD BILIRUBIN INCREASED [None]
  - BLOOD PRESSURE DECREASED [None]
  - CARDIAC ARREST [None]
  - HEPATIC FUNCTION ABNORMAL [None]
  - HYPERTHERMIA [None]
  - JAUNDICE [None]
  - MULTI-ORGAN FAILURE [None]
  - OLIGURIA [None]
